FAERS Safety Report 17191344 (Version 1)
Quarter: 2019Q4

REPORT INFORMATION
  Report Type: Spontaneous
  Country: US (occurrence: US)
  Receive Date: 20191221
  Receipt Date: 20191221
  Transmission Date: 20200122
  Serious: Yes (Life-Threatening, Hospitalization)
  Sender: FDA-Public Use
  Company Number: None

PATIENT
  Age: 70 Year
  Sex: Male
  Weight: 139 kg

DRUGS (2)
  1. STARLIX [Suspect]
     Active Substance: NATEGLINIDE
     Dates: start: 20180201, end: 20191215
  2. VICTOZA [Suspect]
     Active Substance: LIRAGLUTIDE
     Indication: DIABETES MELLITUS
     Route: 058

REACTIONS (10)
  - Hyperkalaemia [None]
  - Systemic inflammatory response syndrome [None]
  - Lactic acidosis [None]
  - Abdominal compartment syndrome [None]
  - Leukocytosis [None]
  - Pancreatitis [None]
  - Shock [None]
  - Acute respiratory failure [None]
  - Hyponatraemia [None]
  - Acute kidney injury [None]

NARRATIVE: CASE EVENT DATE: 20191215
